FAERS Safety Report 21063088 (Version 1)
Quarter: 2022Q3

REPORT INFORMATION
  Report Type: Other
  Country: JP (occurrence: JP)
  Receive Date: 20220711
  Receipt Date: 20220711
  Transmission Date: 20221027
  Serious: Yes (Hospitalization, Other)
  Sender: FDA-Public Use
  Company Number: JP-CHUGAI-2021002049

PATIENT
  Age: 64 Year
  Sex: Female
  Weight: 52.6 kg

DRUGS (12)
  1. ATEZOLIZUMAB [Suspect]
     Active Substance: ATEZOLIZUMAB
     Indication: Lung adenocarcinoma
     Route: 041
     Dates: start: 20210519, end: 20210611
  2. ATEZOLIZUMAB [Suspect]
     Active Substance: ATEZOLIZUMAB
     Dosage: MOST RECENT DOSE RECEIVED: 15/OCT/2021
     Route: 041
     Dates: start: 20170713, end: 20210803
  3. ATEZOLIZUMAB [Suspect]
     Active Substance: ATEZOLIZUMAB
     Route: 042
     Dates: end: 20211015
  4. BEVACIZUMAB [Suspect]
     Active Substance: BEVACIZUMAB
     Indication: Lung adenocarcinoma
     Dosage: DATE OF LAST ADMINISTRATION: 11/JUN/2021
     Route: 041
     Dates: start: 20210519, end: 20210611
  5. BEVACIZUMAB [Suspect]
     Active Substance: BEVACIZUMAB
     Dosage: DATE OF LAST ADMINISTRATION: 15/OCT/2021
     Route: 041
     Dates: start: 20210713, end: 20210803
  6. BEVACIZUMAB [Suspect]
     Active Substance: BEVACIZUMAB
     Route: 041
     Dates: end: 20210115
  7. CARBOPLATIN [Suspect]
     Active Substance: CARBOPLATIN
     Indication: Lung adenocarcinoma
     Dosage: DATE OF LAST ADMINISTRATION: 11/JUN/2021
     Route: 041
     Dates: start: 20210519, end: 20210611
  8. CARBOPLATIN [Suspect]
     Active Substance: CARBOPLATIN
     Dosage: DATE OF LAST ADMINISTRATION: 13/JUL/2021
     Route: 041
     Dates: start: 20210713, end: 20210713
  9. CARBOPLATIN [Suspect]
     Active Substance: CARBOPLATIN
     Dosage: DATE OF LAST ADMINISTRATION: 03/AUG/2021
     Route: 041
     Dates: start: 20210803, end: 20210803
  10. PACLITAXEL [Suspect]
     Active Substance: PACLITAXEL
     Indication: Lung adenocarcinoma
     Dosage: MOST RECENT DOSE WAS RECEIVED ON 11/JUN/2021
     Route: 041
     Dates: start: 20210519, end: 20210611
  11. PACLITAXEL [Suspect]
     Active Substance: PACLITAXEL
     Route: 041
     Dates: start: 20210713, end: 20210803
  12. PACLITAXEL [Suspect]
     Active Substance: PACLITAXEL
     Dosage: MOST RECENT DOSE WAS RECEIVED ON 03/AUG/2021
     Route: 041
     Dates: start: 20210803

REACTIONS (17)
  - Abdominal pain upper [Unknown]
  - Hypoaesthesia [Unknown]
  - Rash [Recovering/Resolving]
  - Nasopharyngitis [Recovering/Resolving]
  - Lymphocyte count decreased [Recovering/Resolving]
  - White blood cell count decreased [Recovered/Resolved]
  - Hypokalaemia [Recovered/Resolved]
  - Hyponatraemia [Recovering/Resolving]
  - Febrile neutropenia [Recovered/Resolved]
  - Anaemia [Recovered/Resolved]
  - Platelet count decreased [Recovered/Resolved]
  - Hypoalbuminaemia [Recovered/Resolved]
  - Aspartate aminotransferase increased [Recovered/Resolved]
  - Alanine aminotransferase increased [Recovered/Resolved]
  - Gamma-glutamyltransferase increased [Recovered/Resolved]
  - Abdominal pain upper [Recovering/Resolving]
  - Peripheral sensory neuropathy [Not Recovered/Not Resolved]

NARRATIVE: CASE EVENT DATE: 20210525
